FAERS Safety Report 15096915 (Version 1)
Quarter: 2018Q3

REPORT INFORMATION
  Report Type: Spontaneous
  Country: DE (occurrence: DE)
  Receive Date: 20180702
  Receipt Date: 20180702
  Transmission Date: 20181010
  Serious: Yes (Hospitalization)
  Sender: FDA-Public Use
  Company Number: DE-NOVAST LABORATORIES, LTD-DE-2018NOV000253

PATIENT

DRUGS (1)
  1. CARISOPRODOL\ASPIRIN [Suspect]
     Active Substance: ASPIRIN\CARISOPRODOL
     Indication: ANTIPLATELET THERAPY
     Dosage: UNK

REACTIONS (1)
  - Troponin T increased [Unknown]
